FAERS Safety Report 9558797 (Version 4)
Quarter: 2013Q4

REPORT INFORMATION
  Report Type: Spontaneous
  Country: US (occurrence: US)
  Receive Date: 20130926
  Receipt Date: 20131211
  Transmission Date: 20140711
  Serious: Yes (Death, Life-Threatening, Hospitalization, Other)
  Sender: FDA-Public Use
  Company Number: US-RB-058615-13

PATIENT
  Age: 23 Year
  Sex: Male

DRUGS (3)
  1. SUBOXONE UNSPECIFIED [Suspect]
     Indication: DRUG DEPENDENCE
     Dosage: DOSING DETAILS UNKNOWN
     Route: 065
  2. SUBUTEX [Suspect]
     Indication: DRUG DEPENDENCE
     Dosage: DOSING DETAILS UNKNOWN
     Route: 065
  3. BENZODIAZEPINES [Suspect]
     Indication: PRODUCT USED FOR UNKNOWN INDICATION
     Dosage: DOSING DETAILS UNKNOWN
     Route: 065

REACTIONS (10)
  - Cellulitis [Unknown]
  - Overdose [Fatal]
  - Unresponsive to stimuli [Unknown]
  - Aspiration [Unknown]
  - Headache [Unknown]
  - Drug intolerance [Recovered/Resolved]
  - Drug dependence [Recovered/Resolved]
  - Pupil fixed [Unknown]
  - Brain death [Fatal]
  - Substance abuse [Recovered/Resolved]
